FAERS Safety Report 18512991 (Version 1)
Quarter: 2020Q4

REPORT INFORMATION
  Report Type: Spontaneous
  Country: US (occurrence: US)
  Receive Date: 20201117
  Receipt Date: 20201117
  Transmission Date: 20210114
  Serious: Yes (Death)
  Sender: FDA-Public Use
  Company Number: US-ABBVIE-20K-163-3651430-00

PATIENT
  Age: 60 Year
  Sex: Male

DRUGS (1)
  1. SEVOFLURANE. [Suspect]
     Active Substance: SEVOFLURANE
     Indication: PRODUCT USED FOR UNKNOWN INDICATION
     Route: 055

REACTIONS (4)
  - Completed suicide [Fatal]
  - Cardiac arrest [Fatal]
  - Cardio-respiratory arrest [Fatal]
  - Respiratory arrest [Fatal]
